FAERS Safety Report 6393865-8 (Version None)
Quarter: 2009Q4

REPORT INFORMATION
  Report Type: 
  Country: None (occurrence: None)
  Receive Date: 20091008
  Receipt Date: 20090926
  Transmission Date: 20100525
  Serious: No
  Sender: FDA-Public Use
  Company Number: US-AVENTIS-200918646US

PATIENT
  Sex: Male

DRUGS (2)
  1. LANTUS [Suspect]
     Route: 058
     Dates: start: 20050101
  2. OPTICLIK (INSULIN INJECTION PEN) [Suspect]

REACTIONS (2)
  - BLOOD GLUCOSE INCREASED [None]
  - MEDICATION ERROR [None]
